FAERS Safety Report 7126699-7 (Version None)
Quarter: 2010Q4

REPORT INFORMATION
  Report Type: 
  Country: None (occurrence: None)
  Receive Date: 20101129
  Receipt Date: 20101118
  Transmission Date: 20110411
  Serious: Yes (Other)
  Sender: FDA-Public Use
  Company Number: US-ROCHE-743272

PATIENT
  Sex: Female

DRUGS (1)
  1. BONIVA [Suspect]
     Route: 065
     Dates: start: 20070201, end: 20091201

REACTIONS (3)
  - BONE DENSITY DECREASED [None]
  - OSTEOMYELITIS [None]
  - OSTEONECROSIS OF JAW [None]
